FAERS Safety Report 7022604-2 (Version None)
Quarter: 2010Q3

REPORT INFORMATION
  Report Type: 
  Country: None (occurrence: None)
  Receive Date: 20100930
  Receipt Date: 20100927
  Transmission Date: 20110219
  Serious: Yes (Death)
  Sender: FDA-Public Use
  Company Number: KR-PFIZER INC-2010122558

PATIENT
  Age: 70 Year
  Sex: Male
  Weight: 64 kg

DRUGS (10)
  1. VORICONAZOLE [Suspect]
     Indication: SYSTEMIC CANDIDA
     Dosage: 280 MG, 2X/DAY
     Route: 048
     Dates: start: 20060815, end: 20060815
  2. VORICONAZOLE [Suspect]
     Dosage: 280 MG, 2X/DAY
     Route: 048
     Dates: start: 20060816, end: 20060816
  3. VORICONAZOLE [Suspect]
     Dosage: 200 MG, 2X/DAY
     Route: 048
     Dates: start: 20060817, end: 20060817
  4. VORICONAZOLE [Suspect]
     Dosage: 200 MG, 2X/DAY
     Route: 048
     Dates: start: 20060818, end: 20060922
  5. CITOPCIN [Concomitant]
     Indication: INFECTION PROPHYLAXIS
     Dosage: 100 MG, 2X/DAY
     Route: 042
     Dates: start: 20060816, end: 20060817
  6. AMIKIN [Concomitant]
     Indication: INFECTION PROPHYLAXIS
     Dosage: UNK, 3X/DAY
     Route: 042
     Dates: start: 20060815, end: 20060922
  7. ZYVOX [Concomitant]
     Indication: INFECTION PROPHYLAXIS
     Dosage: 600 MG, 2X/DAY
     Route: 042
     Dates: start: 20060621, end: 20060926
  8. CEFTAZIDIME [Concomitant]
     Indication: INFECTION PROPHYLAXIS
     Dosage: 2 G, 3X/DAY
     Route: 042
     Dates: start: 20060815, end: 20060818
  9. IMIPENEM AND CILASTATIN SODIUM [Concomitant]
     Indication: INFECTION PROPHYLAXIS
     Dosage: 1000 MG, 4X/DAY
     Route: 042
     Dates: start: 20060818, end: 20060916
  10. AMPICILLIN SODIUM/SULBACTAM SODIUM [Concomitant]
     Indication: INFECTION PROPHYLAXIS
     Dosage: 3000 MG, 1X/DAY
     Route: 042
     Dates: start: 20060818

REACTIONS (1)
  - SEPTIC SHOCK [None]
